FAERS Safety Report 7952172-X (Version None)
Quarter: 2011Q4

REPORT INFORMATION
  Report Type: 
  Country: None (occurrence: None)
  Receive Date: 20111201
  Receipt Date: 20111128
  Transmission Date: 20120403
  Serious: Yes (Life-Threatening, Hospitalization, Other)
  Sender: FDA-Public Use
  Company Number: PHEH2011US03225

PATIENT
  Sex: Female

DRUGS (6)
  1. M.V.I. [Concomitant]
     Route: 048
  2. TEMAZEPAM [Concomitant]
     Dosage: 30 MG
     Route: 048
  3. SOTALOL HCL [Concomitant]
     Route: 048
  4. LESCOL XL [Suspect]
     Indication: HYPERLIPIDAEMIA
     Dosage: 80 MG
     Route: 048
     Dates: start: 20030909
  5. TRAZODONE HCL [Concomitant]
     Dosage: 25 MG, QD
     Route: 048
  6. ASPIRIN [Concomitant]
     Dosage: 325 MG
     Route: 048

REACTIONS (5)
  - PERICARDIAL EFFUSION [None]
  - FOOT FRACTURE [None]
  - SYNCOPE [None]
  - ATRIAL FIBRILLATION [None]
  - APPARENT DEATH [None]
